FAERS Safety Report 24191252 (Version 1)
Quarter: 2024Q3

REPORT INFORMATION
  Report Type: Spontaneous
  Country: US (occurrence: US)
  Receive Date: 20240808
  Receipt Date: 20240808
  Transmission Date: 20241016
  Serious: Yes (Other)
  Sender: Karo Pharma
  Company Number: US-Karo Pharma-2160190

PATIENT
  Age: 40 Year
  Sex: Female

DRUGS (2)
  1. TERBINAFINE [Suspect]
     Active Substance: TERBINAFINE
     Indication: Product used for unknown indication
  2. DOXYCYCLINE [Suspect]
     Active Substance: DOXYCYCLINE\DOXYCYCLINE HYCLATE

REACTIONS (6)
  - Nail discolouration [Unknown]
  - Drug ineffective [Not Recovered/Not Resolved]
  - Onychalgia [Not Recovered/Not Resolved]
  - Nail hypertrophy [Unknown]
  - Nail dystrophy [Unknown]
  - Nail infection [Not Recovered/Not Resolved]
